FAERS Safety Report 16969509 (Version 1)
Quarter: 2019Q4

REPORT INFORMATION
  Report Type: Spontaneous
  Country: BR (occurrence: BR)
  Receive Date: 20191029
  Receipt Date: 20191029
  Transmission Date: 20200122
  Serious: Yes (Other)
  Sender: FDA-Public Use
  Company Number: BR-EMD SERONO-9124757

PATIENT
  Age: 55 Year
  Sex: Female

DRUGS (2)
  1. GLIFAGE [Suspect]
     Active Substance: METFORMIN HYDROCHLORIDE
     Dosage: NEW FORMAT
     Route: 048
     Dates: start: 201908
  2. GLIFAGE [Suspect]
     Active Substance: METFORMIN HYDROCHLORIDE
     Indication: TYPE 2 DIABETES MELLITUS
     Dosage: GLIFAGE XR 500 OLD FORMAT FOR YEARS
     Route: 048

REACTIONS (5)
  - Diarrhoea [Unknown]
  - Diabetes mellitus inadequate control [Unknown]
  - Malaise [Unknown]
  - Abdominal pain [Unknown]
  - Nausea [Unknown]

NARRATIVE: CASE EVENT DATE: 201908
